FAERS Safety Report 7326904-8 (Version None)
Quarter: 2011Q1

REPORT INFORMATION
  Report Type: 
  Country: None (occurrence: None)
  Receive Date: 20110302
  Receipt Date: 20091209
  Transmission Date: 20110831
  Serious: No
  Sender: FDA-Public Use
  Company Number: US-PFIZER INC-2009308392

PATIENT
  Age: 43 Year
  Sex: Male
  Weight: 93.9 kg

DRUGS (2)
  1. DILANTIN-125 [Suspect]
     Indication: EPILEPSY
     Dosage: 260 MG, 1X/DAY
     Route: 048
     Dates: start: 20091101
  2. TRILEPTAL [Suspect]
     Indication: EPILEPSY
     Dosage: 300 MG, 2X/DAY
     Route: 048

REACTIONS (2)
  - ACNE [None]
  - BLISTER [None]
